FAERS Safety Report 6022354-5 (Version None)
Quarter: 2008Q4

REPORT INFORMATION
  Report Type: 
  Country: None (occurrence: None)
  Receive Date: 20081223
  Receipt Date: 20081217
  Transmission Date: 20090506
  Serious: Yes (Hospitalization, Other)
  Sender: FDA-Public Use
  Company Number: 6047777

PATIENT
  Age: 71 Year
  Sex: Male

DRUGS (9)
  1. BISOPROLOL FUMARATE [Suspect]
     Indication: HYPERTENSION
     Dosage: 5 MG (5 MG, 1 IN 1 D)
     Dates: end: 20080309
  2. AVELOX [Suspect]
     Indication: PNEUMONIA
     Dosage: 400 MG (400 MG,1 IN 1 D)
     Dates: start: 20080304, end: 20080309
  3. CLARITHROMYCIN [Suspect]
     Indication: PNEUMONIA
     Dosage: 500 MG (500 MG, 1 IN 1 D)
     Dates: start: 20080225, end: 20080304
  4. COVERSYL ARGIN NE (TABLET) (PERINDOPRIL) [Concomitant]
  5. LIPITOR [Concomitant]
  6. ALLOPURINOL [Concomitant]
  7. SERETIDE DISKUS (FLUTICASONE PROPIONATE, SALMETEROL XINAFOATE) [Concomitant]
  8. ISTIN (TABLET) (AMLODIPINE BESILATE) [Concomitant]
  9. WARFANT (TABLET) (WARFARIN SODIUM CLATHRATE) [Concomitant]

REACTIONS (3)
  - BRADYCARDIA [None]
  - BUNDLE BRANCH BLOCK RIGHT [None]
  - ELECTROCARDIOGRAM QT INTERVAL ABNORMAL [None]
